FAERS Safety Report 8997240 (Version 3)
Quarter: 2013Q4

REPORT INFORMATION
  Report Type: Report from Study
  Country: US (occurrence: US)
  Receive Date: 20130104
  Receipt Date: 20131003
  Transmission Date: 20140711
  Serious: Yes (Hospitalization)
  Sender: FDA-Public Use
  Company Number: US-ELI_LILLY_AND_COMPANY-US201209003023

PATIENT
  Sex: Female

DRUGS (4)
  1. TERIPARATIDE [Suspect]
     Indication: OSTEOPOROSIS
     Dosage: 20 UG, QD
     Route: 058
     Dates: start: 201207
  2. TERIPARATIDE [Suspect]
     Dosage: 20 UG, QD
     Route: 058
  3. TERIPARATIDE [Suspect]
     Dosage: 20 UG, QD
     Route: 058
  4. TERIPARATIDE [Suspect]
     Dosage: 20 UG, QD
     Route: 058

REACTIONS (10)
  - Sepsis [Unknown]
  - Gastrointestinal infection [Unknown]
  - Colon injury [Unknown]
  - Infected cyst [Unknown]
  - Neuralgia [Recovered/Resolved]
  - Musculoskeletal chest pain [Recovering/Resolving]
  - Skeletal injury [Unknown]
  - Dyspnoea [Recovering/Resolving]
  - Pain [Recovered/Resolved]
  - Fall [Unknown]
